FAERS Safety Report 18607276 (Version 1)
Quarter: 2020Q4

REPORT INFORMATION
  Report Type: Spontaneous
  Country: CA (occurrence: CA)
  Receive Date: 20201211
  Receipt Date: 20201211
  Transmission Date: 20210114
  Serious: Yes (Hospitalization, Other)
  Sender: FDA-Public Use
  Company Number: CA-BAYER-2020-266825

PATIENT
  Age: 64 Year
  Sex: Female

DRUGS (47)
  1. ANTITHYMOCYTE IMMUNOGLOBULIN [Suspect]
     Active Substance: THYMOCYTE IMMUNE GLOBULIN NOS
  2. BACLOFEN. [Suspect]
     Active Substance: BACLOFEN
  3. LACTOBACILLUS ACIDOPHILUS [Suspect]
     Active Substance: LACTOBACILLUS ACIDOPHILUS
  4. MELATONIN [Suspect]
     Active Substance: MELATONIN
  5. NASONEX [Suspect]
     Active Substance: MOMETASONE FUROATE
  6. POTASSIUM CHLORIDE. [Suspect]
     Active Substance: POTASSIUM CHLORIDE
  7. PREDNISONE. [Suspect]
     Active Substance: PREDNISONE
  8. SALMO SALAR OIL [Suspect]
     Active Substance: ATLANTIC SALMON OIL
  9. SULFATRIM [SULFADIAZINE;TRIMETHOPRIM] [Suspect]
     Active Substance: SULFADIAZINE\TRIMETHOPRIM
  10. WARFARIN [Suspect]
     Active Substance: WARFARIN
  11. ERGOCALCIFEROL. [Suspect]
     Active Substance: ERGOCALCIFEROL
  12. FOLIC ACID. [Suspect]
     Active Substance: FOLIC ACID
  13. FUROSEMIDE. [Suspect]
     Active Substance: FUROSEMIDE
  14. HYDROMORPHONE [Suspect]
     Active Substance: HYDROMORPHONE
  15. IMODIUM [Suspect]
     Active Substance: LOPERAMIDE HYDROCHLORIDE
  16. NORTRIPTYLINE HYDROCHLORIDE. [Suspect]
     Active Substance: NORTRIPTYLINE HYDROCHLORIDE
  17. OMEGA-3 NOS [Suspect]
     Active Substance: OMEGA-3 FATTY ACIDS
  18. TETANUS IMMUNE GLOBULIN (HUMAN) [Suspect]
     Active Substance: HUMAN CLOSTRIDIUM TETANI TOXOID IMMUNE GLOBULIN
  19. ALEVE [Suspect]
     Active Substance: NAPROXEN SODIUM
  20. D-ALPHA TOCOPHEROL [Suspect]
     Active Substance: .ALPHA.-TOCOPHEROL, D-
  21. HORSE CHESTNUT EXTRACT [Suspect]
     Active Substance: HORSE CHESTNUT
  22. SENNA ALEXANDRINA [Suspect]
     Active Substance: SENNA LEAF
  23. RETINOL [Suspect]
     Active Substance: RETINOL
  24. VITAMIN B COMPLEX [Suspect]
     Active Substance: CYANOCOBALAMIN\DEXPANTHENOL\NIACINAMIDE\PYRIDOXINE HYDROCHLORIDE\RIBOFLAVIN 5^-PHOSPHATE SODIUM\THIAMINE HYDROCHLORIDE\VITAMIN B COMPLEX
  25. CYMBALTA [Suspect]
     Active Substance: DULOXETINE HYDROCHLORIDE
  26. VITAMIN C ACID [Suspect]
     Active Substance: ASCORBIC ACID
  27. CALCIUM CARBONATE. [Suspect]
     Active Substance: CALCIUM CARBONATE
  28. CREATINE [Suspect]
     Active Substance: CREATINE
  29. GLICLAZIDE [Suspect]
     Active Substance: GLICLAZIDE
  30. MOMETASONE FUROATE. [Suspect]
     Active Substance: MOMETASONE FUROATE
  31. NOVO-HYDRAZIDE [Suspect]
     Active Substance: HYDROCHLOROTHIAZIDE
  32. SULFADIAZINE. [Suspect]
     Active Substance: SULFADIAZINE
  33. ZOPICLONE [Suspect]
     Active Substance: ZOPICLONE
  34. ATIVAN [Suspect]
     Active Substance: LORAZEPAM
  35. CALCIUM [Suspect]
     Active Substance: CALCIUM
  36. FOSAMAX [Suspect]
     Active Substance: ALENDRONATE SODIUM
  37. LYRICA [Suspect]
     Active Substance: PREGABALIN
  38. MYCOPHENOLATE MOFETIL. [Suspect]
     Active Substance: MYCOPHENOLATE MOFETIL
  39. PYRIDOXINE [Suspect]
     Active Substance: PYRIDOXINE
  40. NICOTINAMIDE [Suspect]
     Active Substance: NIACINAMIDE
  41. TIZANIDINE HCL [Suspect]
     Active Substance: TIZANIDINE HYDROCHLORIDE
  42. ZANTAC [Suspect]
     Active Substance: RANITIDINE HYDROCHLORIDE
  43. ALENDRONATE SODIUM. [Suspect]
     Active Substance: ALENDRONATE SODIUM
  44. DOCUSATE SODIUM. [Suspect]
     Active Substance: DOCUSATE SODIUM
  45. DULOXETINE. [Suspect]
     Active Substance: DULOXETINE
  46. RANITIDINE. [Suspect]
     Active Substance: RANITIDINE
  47. SENNOSIDES. [Suspect]
     Active Substance: SENNOSIDES

REACTIONS (5)
  - Coma [Recovered/Resolved]
  - Underdose [Recovered/Resolved]
  - Gastrooesophageal reflux disease [Recovered/Resolved]
  - Somnolence [Recovered/Resolved]
  - Pneumonia aspiration [Recovered/Resolved]
